FAERS Safety Report 6432245-3 (Version None)
Quarter: 2009Q4

REPORT INFORMATION
  Report Type: 
  Country: None (occurrence: None)
  Receive Date: 20091105
  Receipt Date: 20091021
  Transmission Date: 20100525
  Serious: Yes (Hospitalization)
  Sender: FDA-Public Use
  Company Number: AUR-APL-2009-01065

PATIENT
  Age: 43 Year
  Sex: Female
  Weight: 163.5 kg

DRUGS (22)
  1. LISINOPRIL [Suspect]
     Dosage: 20MG - ORAL
     Route: 048
     Dates: end: 20081013
  2. ACOMPLIA [Suspect]
     Indication: OBESITY
     Dosage: 20MG - ORAL
     Route: 048
     Dates: start: 20070629, end: 20081013
  3. ASPIRIN [Concomitant]
  4. ATENOLOL [Concomitant]
  5. ATORVASTATIN [Concomitant]
  6. BISOPROLOL [Concomitant]
  7. CODEINE [Concomitant]
  8. DILTIAZEM [Concomitant]
  9. FUROSEMIDE [Concomitant]
  10. GLYCERYL TRINITRATE [Concomitant]
  11. ISOSORBIDE MONONITRATE [Concomitant]
  12. ISPAGHULA [Concomitant]
  13. LIDOCAINE [Concomitant]
  14. NITRAZEPAM [Concomitant]
  15. OMACOR [Concomitant]
  16. LOVAZA [Concomitant]
  17. PARACETMOL [Concomitant]
  18. QUININE SULFATE [Concomitant]
  19. TRIMETHOPRIM [Concomitant]
  20. VESICARE [Concomitant]
  21. IRBESARTAN [Suspect]
  22. SPIRONOLACTONE [Suspect]

REACTIONS (9)
  - ATRIAL FIBRILLATION [None]
  - BACK PAIN [None]
  - DEHYDRATION [None]
  - FEAR OF EATING [None]
  - GASTROOESOPHAGEAL REFLUX DISEASE [None]
  - HYPERTENSION [None]
  - RECTAL HAEMORRHAGE [None]
  - RENAL FAILURE ACUTE [None]
  - WEIGHT INCREASED [None]
